FAERS Safety Report 9046315 (Version 2)
Quarter: 2013Q1

REPORT INFORMATION
  Report Type: Spontaneous
  Country: IE (occurrence: IE)
  Receive Date: 20130201
  Receipt Date: 20130222
  Transmission Date: 20140127
  Serious: Yes (Death, Hospitalization)
  Sender: FDA-Public Use
  Company Number: IE-JNJFOC-20130111944

PATIENT
  Age: 83 Year
  Sex: 0

DRUGS (8)
  1. DUROGESIC DTRANS [Suspect]
     Indication: PAIN
     Route: 062
     Dates: start: 201208, end: 20120829
  2. CIPROXIN NOS [Concomitant]
     Indication: PRODUCT USED FOR UNKNOWN INDICATION
     Route: 048
     Dates: start: 20120826, end: 20120831
  3. ALLOPURINOL [Concomitant]
     Indication: LYMPHOMA
     Route: 065
  4. COMBIVENT [Concomitant]
     Indication: CHRONIC OBSTRUCTIVE PULMONARY DISEASE
     Route: 065
  5. PREDNISOLONE [Concomitant]
     Indication: ARTHRITIS
     Route: 065
  6. XYZAL [Concomitant]
     Indication: ARTHRITIS
     Route: 065
  7. ISOSORBIDE [Concomitant]
     Indication: ANGINA PECTORIS
     Route: 065
  8. UNKNOWN MEDICATION [Concomitant]
     Indication: STEROID THERAPY
     Route: 065

REACTIONS (6)
  - B-cell lymphoma [Fatal]
  - Yawning [Recovered/Resolved]
  - Aggression [Recovered/Resolved]
  - Agitation [Recovered/Resolved]
  - Restlessness [Recovered/Resolved]
  - Hyperhidrosis [Recovered/Resolved]
